FAERS Safety Report 5767723-3 (Version None)
Quarter: 2008Q2

REPORT INFORMATION
  Report Type: 
  Country: None (occurrence: None)
  Receive Date: 20080612
  Receipt Date: 20080606
  Transmission Date: 20081010
  Serious: Yes (Other)
  Sender: FDA-Public Use
  Company Number: CN-JNJFOC-20080601845

PATIENT
  Age: 2 Year
  Sex: Male

DRUGS (3)
  1. CHILDRENS TYLENOL PLUS COLD AND COUGH ORAL [Suspect]
     Indication: RHINORRHOEA
  2. CHILDRENS TYLENOL PLUS COLD AND COUGH ORAL [Suspect]
     Indication: COUGH
  3. COLD MEDICINE [Concomitant]
     Route: 048

REACTIONS (3)
  - DRUG INEFFECTIVE [None]
  - PHARMACEUTICAL PRODUCT COUNTERFEIT [None]
  - VOMITING [None]
